FAERS Safety Report 12014344 (Version 1)
Quarter: 2016Q1

REPORT INFORMATION
  Report Type: Spontaneous
  Country: BE (occurrence: BE)
  Receive Date: 20160205
  Receipt Date: 20160205
  Transmission Date: 20160526
  Serious: Yes (Other)
  Sender: FDA-Public Use
  Company Number: BE-ASTRAZENECA-2016SE10402

PATIENT
  Sex: Male
  Weight: 101 kg

DRUGS (11)
  1. GLUCOPHAGE [Concomitant]
     Active Substance: METFORMIN HYDROCHLORIDE
  2. ARTERINA [Concomitant]
     Dosage: 1/ DAY
  3. CRESTOR [Suspect]
     Active Substance: ROSUVASTATIN CALCIUM
     Route: 048
  4. FYBOGEL [Concomitant]
     Active Substance: PLANTAGO OVATA SEED
  5. PANTOMED [Concomitant]
     Active Substance: DEXPANTHENOL
  6. ALLOPURINOL. [Concomitant]
     Active Substance: ALLOPURINOL
  7. MOXONIDINE [Concomitant]
     Active Substance: MOXONIDINE
  8. NOVOMIX [Concomitant]
     Active Substance: INSULIN ASPART
     Dosage: 28 U IN THE MORNING, 48 U EVENING
  9. MICARDIS [Concomitant]
     Active Substance: TELMISARTAN
  10. LYRICA [Suspect]
     Active Substance: PREGABALIN
     Indication: NEURALGIA
     Route: 048
     Dates: start: 20151017, end: 20151019
  11. HALCION [Concomitant]
     Active Substance: TRIAZOLAM

REACTIONS (8)
  - Drug intolerance [Unknown]
  - Malaise [Recovered/Resolved]
  - Speech disorder [Recovered/Resolved]
  - Somnolence [Recovered/Resolved]
  - Angioedema [Recovered/Resolved]
  - Visual impairment [Recovered/Resolved]
  - Balance disorder [Recovered/Resolved]
  - Swollen tongue [Recovered/Resolved]
